FAERS Safety Report 9382767 (Version 2)
Quarter: 2013Q4

REPORT INFORMATION
  Report Type: Spontaneous
  Country: JP (occurrence: JP)
  Receive Date: 20130703
  Receipt Date: 20131011
  Transmission Date: 20140711
  Serious: Yes (Disabling)
  Sender: FDA-Public Use
  Company Number: JP-OTSUKA-JP-2013-12413

PATIENT
  Age: 65 Year
  Sex: Male

DRUGS (2)
  1. BUSULFEX [Suspect]
     Indication: STEM CELL TRANSPLANT
     Route: 041
  2. FLUDARABINE [Concomitant]
     Indication: STEM CELL TRANSPLANT
     Route: 065

REACTIONS (1)
  - Cholecystitis acute [Recovered/Resolved]
